FAERS Safety Report 6605258-6 (Version None)
Quarter: 2010Q1

REPORT INFORMATION
  Report Type: 
  Country: None (occurrence: None)
  Receive Date: 20100226
  Receipt Date: 20100222
  Transmission Date: 20100710
  Serious: Yes (Life-Threatening, Hospitalization)
  Sender: FDA-Public Use
  Company Number: IN-SANOFI-AVENTIS-2010SA010591

PATIENT
  Age: 61 Year
  Sex: Female

DRUGS (4)
  1. OXALIPLATIN [Suspect]
     Route: 041
     Dates: start: 20100127, end: 20100127
  2. PALONOSETRON [Suspect]
     Indication: PREMEDICATION
     Dates: start: 20100127
  3. ANTIHYPERTENSIVES [Concomitant]
     Route: 065
  4. DEXAMETHASONE [Concomitant]
     Indication: PREMEDICATION
     Route: 065

REACTIONS (8)
  - CARDIAC ARREST [None]
  - DEFAECATION URGENCY [None]
  - DIZZINESS [None]
  - ELECTROCARDIOGRAM QT PROLONGED [None]
  - HYPOKALAEMIA [None]
  - HYPOVENTILATION [None]
  - LOSS OF CONSCIOUSNESS [None]
  - PULSE ABSENT [None]
